FAERS Safety Report 8267542-2 (Version None)
Quarter: 2012Q2

REPORT INFORMATION
  Report Type: 
  Country: None (occurrence: None)
  Receive Date: 20120405
  Receipt Date: 20120405
  Transmission Date: 20120825
  Serious: Yes (Hospitalization)
  Sender: FDA-Public Use
  Company Number: None

PATIENT
  Sex: Female
  Weight: 53.6 kg

DRUGS (3)
  1. MERCAPTOPURINE [Suspect]
     Dosage: 2500 MG
  2. CYCLOPHOSPHAMIDE [Suspect]
     Dosage: 2900 MG
  3. CYTARABINE [Suspect]
     Dosage: 216 MG

REACTIONS (17)
  - HEPATIC STEATOSIS [None]
  - CONVULSION [None]
  - MALLORY-WEISS SYNDROME [None]
  - TACHYCARDIA [None]
  - NAUSEA [None]
  - BACTERAEMIA [None]
  - AMMONIA INCREASED [None]
  - FAECES DISCOLOURED [None]
  - PLATELET COUNT DECREASED [None]
  - ABDOMINAL PAIN [None]
  - CHOLELITHIASIS [None]
  - HYPERTENSION [None]
  - POSTERIOR REVERSIBLE ENCEPHALOPATHY SYNDROME [None]
  - HAEMATEMESIS [None]
  - ENTEROCOLITIS [None]
  - SEPTIC SHOCK [None]
  - NEUTROPENIA [None]
